FAERS Safety Report 15849732 (Version 1)
Quarter: 2019Q1

REPORT INFORMATION
  Report Type: Report from Study
  Country: US (occurrence: US)
  Receive Date: 20190121
  Receipt Date: 20190121
  Transmission Date: 20190417
  Serious: Yes (Hospitalization)
  Sender: FDA-Public Use
  Company Number: US-BAUSCH-BL-2019-001694

PATIENT
  Age: 69 Year
  Sex: Female
  Weight: 50.85 kg

DRUGS (2)
  1. XIFAXAN [Suspect]
     Active Substance: RIFAXIMIN
     Dosage: REDUCED THE DOSE
     Route: 048
     Dates: end: 20190112
  2. XIFAXAN [Suspect]
     Active Substance: RIFAXIMIN
     Indication: HEPATIC ENCEPHALOPATHY
     Route: 048
     Dates: start: 2016

REACTIONS (7)
  - Fall [Unknown]
  - Therapy cessation [Not Recovered/Not Resolved]
  - Injury [Unknown]
  - Head injury [Unknown]
  - Product availability issue [Not Recovered/Not Resolved]
  - Blood count abnormal [Unknown]
  - Intentional product use issue [Recovered/Resolved]

NARRATIVE: CASE EVENT DATE: 20190112
